FAERS Safety Report 7888099-1 (Version None)
Quarter: 2011Q4

REPORT INFORMATION
  Report Type: 
  Country: None (occurrence: None)
  Receive Date: 20111103
  Receipt Date: 20111025
  Transmission Date: 20120403
  Serious: Yes (Hospitalization, Other)
  Sender: FDA-Public Use
  Company Number: BR-BRISTOL-MYERS SQUIBB COMPANY-16196347

PATIENT
  Age: 37 Year
  Sex: Male

DRUGS (7)
  1. METOPROLOL SUCCINATE [Suspect]
  2. SPIRONOLACTONE [Suspect]
  3. ATACAND [Suspect]
  4. DIGOXIN [Suspect]
  5. WARFARIN SODIUM [Suspect]
  6. COUMADIN [Suspect]
  7. FUROSEMIDE [Suspect]

REACTIONS (6)
  - CONTUSION [None]
  - ACUTE PULMONARY OEDEMA [None]
  - HYPERTENSION [None]
  - INTERNATIONAL NORMALISED RATIO INCREASED [None]
  - CARDIAC FAILURE CONGESTIVE [None]
  - SINUS TACHYCARDIA [None]
